FAERS Safety Report 18007160 (Version 2)
Quarter: 2020Q3

REPORT INFORMATION
  Report Type: Spontaneous
  Country: US (occurrence: US)
  Receive Date: 20200710
  Receipt Date: 20200824
  Transmission Date: 20201103
  Serious: Yes (Hospitalization, Other)
  Sender: FDA-Public Use
  Company Number: US-AMGEN-USASP2020109586

PATIENT
  Age: 78 Year
  Sex: Male
  Weight: 118.4 kg

DRUGS (4)
  1. KYPROLIS [Suspect]
     Active Substance: CARFILZOMIB
     Indication: PLASMA CELL MYELOMA
     Dosage: 45 MILLIGRAM/SQ. METER (110 MILLIGRAM), QWK
     Route: 042
     Dates: start: 20200601
  2. DEXAMETHASONE. [Concomitant]
     Active Substance: DEXAMETHASONE
     Indication: PLASMA CELL MYELOMA
     Dosage: 40 MILLIGRAM
     Route: 042
  3. KYPROLIS [Suspect]
     Active Substance: CARFILZOMIB
     Dosage: 45 MILLIGRAM/SQ. METER (110 MILLIGRAM), QWK
     Route: 042
  4. KYPROLIS [Suspect]
     Active Substance: CARFILZOMIB
     Dosage: 45 MILLIGRAM/SQ. METER (110 MILLIGRAM), QWK
     Route: 042

REACTIONS (1)
  - Acute kidney injury [Recovered/Resolved]

NARRATIVE: CASE EVENT DATE: 20200629
